FAERS Safety Report 10907118 (Version 2)
Quarter: 2015Q1

REPORT INFORMATION
  Report Type: Spontaneous
  Country: FR (occurrence: FR)
  Receive Date: 20150312
  Receipt Date: 20150316
  Transmission Date: 20150721
  Serious: Yes (Hospitalization)
  Sender: FDA-Public Use
  Company Number: FR-TEVA-546751USA

PATIENT
  Age: 56 Year
  Sex: Male

DRUGS (11)
  1. ZOPHREN                            /00955301/ [Concomitant]
     Active Substance: ONDANSETRON
     Indication: ANTIEMETIC SUPPORTIVE CARE
     Dosage: UNK, UNKNOWN FREQ.
     Route: 042
     Dates: start: 20150108, end: 20150116
  2. EMEND [Concomitant]
     Active Substance: APREPITANT
     Indication: ANTIEMETIC SUPPORTIVE CARE
     Route: 048
  3. SOLU-MEDROL [Concomitant]
     Active Substance: METHYLPREDNISOLONE SODIUM SUCCINATE
     Indication: ANTIEMETIC SUPPORTIVE CARE
     Route: 042
     Dates: start: 20150108, end: 20150115
  4. PLITICAN [Concomitant]
     Active Substance: ALIZAPRIDE HYDROCHLORIDE
     Indication: ANTIEMETIC SUPPORTIVE CARE
     Route: 042
     Dates: start: 20150109, end: 20150113
  5. ETOPOSIDE. [Suspect]
     Active Substance: ETOPOSIDE
     Indication: PRODUCT USED FOR UNKNOWN INDICATION
     Route: 042
     Dates: start: 20150110, end: 20150113
  6. ALKERAN [Suspect]
     Active Substance: MELPHALAN
     Indication: CHEMOTHERAPY
     Dosage: UNK UNK, UNKNOWN FREQ.
     Route: 042
     Dates: start: 20150114
  7. PLASMALYTE [Concomitant]
     Active Substance: ELECTROLYTES NOS
  8. SODIUM BICARBONATE. [Concomitant]
     Active Substance: SODIUM BICARBONATE
  9. EMEND [Concomitant]
     Active Substance: APREPITANT
     Route: 048
     Dates: start: 20150108, end: 20150116
  10. LEVACT [Suspect]
     Active Substance: BENDAMUSTINE HYDROCHLORIDE
     Indication: CHEMOTHERAPY
     Route: 042
     Dates: start: 20150108, end: 20150109
  11. ARACYTINE [Suspect]
     Active Substance: CYTARABINE
     Indication: CHEMOTHERAPY
     Route: 042
     Dates: start: 20150110, end: 20150113

REACTIONS (1)
  - Acute kidney injury [Recovered/Resolved]

NARRATIVE: CASE EVENT DATE: 20150113
